FAERS Safety Report 14499205 (Version 1)
Quarter: 2018Q1

REPORT INFORMATION
  Report Type: Spontaneous
  Country: CN (occurrence: CN)
  Receive Date: 20180207
  Receipt Date: 20180207
  Transmission Date: 20180509
  Serious: Yes (Other)
  Sender: FDA-Public Use
  Company Number: CN-FRESENIUS KABI-FK201801465

PATIENT
  Age: 75 Year
  Sex: Female

DRUGS (3)
  1. LIPOVENOES MCT 20% [Suspect]
     Active Substance: EGG PHOSPHOLIPIDS\GLYCERIN\MEDIUM-CHAIN TRIGLYCERIDES\SOYBEAN OIL
     Indication: NUTRITIONAL SUPPLEMENTATION
     Route: 041
     Dates: start: 20170916, end: 20170917
  2. NOVAMIN 8.5% [Suspect]
     Active Substance: AMINO ACIDS
     Indication: NUTRITIONAL SUPPLEMENTATION
     Route: 041
     Dates: start: 20170916, end: 20170917
  3. DIPEPTIVEN [Suspect]
     Active Substance: ALANYL GLUTAMINE
     Indication: NUTRITIONAL SUPPLEMENTATION
     Route: 041
     Dates: start: 20170916, end: 20170917

REACTIONS (5)
  - Blood pressure systolic increased [None]
  - Tachycardia [Recovering/Resolving]
  - Blood pressure diastolic decreased [None]
  - Infusion related reaction [None]
  - Chills [Recovering/Resolving]

NARRATIVE: CASE EVENT DATE: 20170917
